FAERS Safety Report 9726989 (Version 1)
Quarter: 2013Q4

REPORT INFORMATION
  Report Type: Spontaneous
  Country: US (occurrence: US)
  Receive Date: 20131203
  Receipt Date: 20131203
  Transmission Date: 20140711
  Serious: No
  Sender: FDA-Public Use
  Company Number: US-NOVEN-13US007562

PATIENT
  Age: 73 Year
  Sex: Female

DRUGS (11)
  1. FENTANYL [Suspect]
     Indication: FRACTURE PAIN
     Dosage: 25MCG/HR, ONE PATCH Q 72 HRS
     Route: 062
     Dates: start: 20130618, end: 201308
  2. PERCOCET                           /00446701/ [Concomitant]
     Dosage: UNK
  3. BABY ASPIRIN [Concomitant]
     Dosage: UNK
  4. HYDROCHLOROTHIAZIDE [Concomitant]
     Dosage: UNK
  5. PRILOSEC                           /00661201/ [Concomitant]
     Dosage: UNK
  6. POTASSIUM [Concomitant]
     Dosage: UNK
  7. MIRAPEX [Concomitant]
     Dosage: UNK
  8. ZANTAC [Concomitant]
     Dosage: UNK
  9. CARAFATE [Concomitant]
     Dosage: UNK
  10. ZANAFLEX [Concomitant]
     Dosage: UNK
  11. FORTEO [Concomitant]
     Dosage: UNK

REACTIONS (3)
  - Application site hypersensitivity [Recovered/Resolved]
  - Application site pruritus [Recovered/Resolved]
  - Application site erythema [Recovered/Resolved]
